FAERS Safety Report 15277902 (Version 1)
Quarter: 2018Q3

REPORT INFORMATION
  Report Type: Spontaneous
  Country: US (occurrence: US)
  Receive Date: 20180814
  Receipt Date: 20180814
  Transmission Date: 20181010
  Serious: No
  Sender: FDA-Public Use
  Company Number: US-BAYER-2018-148128

PATIENT
  Age: 81 Year
  Sex: Female
  Weight: 57.96 kg

DRUGS (5)
  1. CLARITIN [Suspect]
     Active Substance: LORATADINE
     Dosage: 1 DF, QD
     Route: 048
     Dates: start: 201807
  2. CRANBERRY. [Concomitant]
     Active Substance: CRANBERRY
     Dosage: 250 UNK, UNK
  3. GABAPENTIN. [Concomitant]
     Active Substance: GABAPENTIN
  4. TURMERIC [Concomitant]
     Active Substance: HERBALS\TURMERIC
  5. ESTER?C [CALCIUM ASCORBATE] [Concomitant]

REACTIONS (2)
  - Product use complaint [None]
  - Intentional product use issue [Unknown]
